FAERS Safety Report 15181073 (Version 1)
Quarter: 2018Q3

REPORT INFORMATION
  Report Type: Spontaneous
  Country: US (occurrence: US)
  Receive Date: 20180624
  Receipt Date: 20180624
  Transmission Date: 20181010
  Serious: Yes (Hospitalization)
  Sender: FDA-Public Use
  Company Number: None

PATIENT
  Age: 30 Year
  Sex: Male
  Weight: 69.75 kg

DRUGS (4)
  1. LYRICA [Suspect]
     Active Substance: PREGABALIN
     Indication: NECK PAIN
     Dosage: ?          QUANTITY:60 DF DOSAGE FORM;?
     Route: 048
     Dates: start: 20170206, end: 20170530
  2. MULTI?VITAMIN [Concomitant]
     Active Substance: .ALPHA.-TOCOPHEROL ACETATE, DL-\ASCORBIC ACID\CYANOCOBALAMIN\FLUORIDE ION\FOLIC ACID\NIACIN\PYRIDOXINE\RIBOFLAVIN\THIAMINE\VITAMIN A\VITAMIN D
  3. WELLBUTRIN [Concomitant]
     Active Substance: BUPROPION HYDROCHLORIDE
  4. CYMBALTA [Concomitant]
     Active Substance: DULOXETINE HYDROCHLORIDE

REACTIONS (19)
  - Pain [None]
  - Inability to afford medication [None]
  - Anxiety [None]
  - Heart rate increased [None]
  - Headache [None]
  - Diarrhoea [None]
  - Night sweats [None]
  - Flushing [None]
  - Dizziness [None]
  - Tremor [None]
  - Insomnia [None]
  - Hot flush [None]
  - Nausea [None]
  - Facial pain [None]
  - Feeling cold [None]
  - Hyperhidrosis [None]
  - Product substitution issue [None]
  - Depression [None]
  - Decreased appetite [None]

NARRATIVE: CASE EVENT DATE: 20170531
